FAERS Safety Report 13929072 (Version 1)
Quarter: 2017Q3

REPORT INFORMATION
  Report Type: Spontaneous
  Country: US (occurrence: None)
  Receive Date: 20170901
  Receipt Date: 20170901
  Transmission Date: 20171127
  Serious: Yes (Hospitalization)
  Sender: FDA-Public Use
  Company Number: None

PATIENT
  Age: 37 Year
  Sex: Male

DRUGS (2)
  1. MATULANE [Suspect]
     Active Substance: PROCARBAZINE HYDROCHLORIDE
     Indication: BRAIN NEOPLASM MALIGNANT
     Dosage: 150MG QDX14 DAYS Q 8 WEEKS PO
     Route: 048
     Dates: start: 20170725
  2. GLEOSTINE [Suspect]
     Active Substance: LOMUSTINE
     Dosage: 360 MG QD X 1 DOSE Q 8 WEEKS PO
     Route: 048
     Dates: start: 20170725

REACTIONS (3)
  - Tracheostomy [None]
  - Pneumonia [None]
  - Renal failure [None]

NARRATIVE: CASE EVENT DATE: 20170828
